FAERS Safety Report 8985114 (Version 3)
Quarter: 2013Q1

REPORT INFORMATION
  Report Type: Spontaneous
  Country: CA (occurrence: CA)
  Receive Date: 20121226
  Receipt Date: 20130301
  Transmission Date: 20140127
  Serious: Yes (Other)
  Sender: FDA-Public Use
  Company Number: PHHY2012CA117969

PATIENT
  Sex: Female

DRUGS (6)
  1. TASIGNA [Suspect]
     Indication: CHRONIC MYELOID LEUKAEMIA
     Dosage: 400 MG, BID
     Route: 048
     Dates: start: 20120528, end: 201208
  2. TASIGNA [Suspect]
     Dosage: 150 MG, BID
     Route: 048
     Dates: end: 201208
  3. AGRYLIN [Concomitant]
  4. NEXIUM [Concomitant]
  5. VALSARTAN [Concomitant]
  6. CELEBREX [Concomitant]

REACTIONS (5)
  - Toxicity to various agents [Unknown]
  - White blood cell count decreased [Unknown]
  - Platelet count increased [Unknown]
  - Nasopharyngitis [Unknown]
  - Tremor [Unknown]
